FAERS Safety Report 19084922 (Version 1)
Quarter: 2021Q2

REPORT INFORMATION
  Report Type: Spontaneous
  Country: CA (occurrence: CA)
  Receive Date: 20210401
  Receipt Date: 20210401
  Transmission Date: 20210717
  Serious: Yes (Death)
  Sender: FDA-Public Use
  Company Number: CA-PFIZER INC-2021344579

PATIENT
  Age: 84 Year
  Sex: Female
  Weight: 66 kg

DRUGS (16)
  1. CIPROFLOXACIN. [Interacting]
     Active Substance: CIPROFLOXACIN
     Indication: INCISION SITE CELLULITIS
     Dosage: 400 MG, 2X/DAY
     Route: 042
  2. FUROSEMIDE. [Concomitant]
     Active Substance: FUROSEMIDE
  3. GRANULOCYTE COLONY STIMULATING FACTOR [Concomitant]
     Active Substance: GRANULOCYTE COLONY-STIMULATING FACTOR NOS
  4. MEROPENEM. [Concomitant]
     Active Substance: MEROPENEM
  5. MIDAZOLAM. [Concomitant]
     Active Substance: MIDAZOLAM
  6. VANCOMYCIN [Concomitant]
     Active Substance: VANCOMYCIN
  7. LEUCOVORIN [FOLINIC ACID] [Concomitant]
     Active Substance: LEUCOVORIN
  8. SODIUM CHLORIDE. [Concomitant]
     Active Substance: SODIUM CHLORIDE
  9. CEFTRIAXONE FOR INJECTION [Concomitant]
     Active Substance: CEFTRIAXONE
  10. METRONIDAZOLE. [Concomitant]
     Active Substance: METRONIDAZOLE
  11. SEPTRA [Concomitant]
     Active Substance: SULFAMETHOXAZOLE\TRIMETHOPRIM
  12. CLOBETASOL [Concomitant]
     Active Substance: CLOBETASOL
  13. PANTOPRAZOLE [Concomitant]
     Active Substance: PANTOPRAZOLE
  14. METHOTREXATE SODIUM. [Suspect]
     Active Substance: METHOTREXATE SODIUM
     Indication: PEMPHIGOID
     Dosage: 20 MG, ONCE WEEKLY
     Route: 048
  15. HYDROCORTISONE. [Concomitant]
     Active Substance: HYDROCORTISONE
  16. BICARBONATE SODIUM [Concomitant]
     Active Substance: SODIUM BICARBONATE

REACTIONS (9)
  - Blood creatinine increased [Fatal]
  - Stevens-Johnson syndrome [Fatal]
  - White blood cell count decreased [Fatal]
  - Drug interaction [Fatal]
  - Pruritus [Fatal]
  - Neutropenia [Fatal]
  - Off label use [Unknown]
  - Skin exfoliation [Fatal]
  - Blister [Fatal]
